FAERS Safety Report 6666714-8 (Version None)
Quarter: 2010Q2

REPORT INFORMATION
  Report Type: 
  Country: None (occurrence: None)
  Receive Date: 20100402
  Receipt Date: 20100402
  Transmission Date: 20101027
  Serious: Yes (Other)
  Sender: FDA-Public Use
  Company Number: None

PATIENT
  Sex: Female
  Weight: 52.1637 kg

DRUGS (2)
  1. PREDNISOLONE ACETATE [Suspect]
     Indication: IRITIS
     Dosage: 1 GH Q1D EYE DROP ; 1 GH TID/BID QD EYEDROP
     Route: 047
     Dates: start: 20100224, end: 20100311
  2. PREDNISOLONE ACETATE [Suspect]
     Indication: IRITIS
     Dosage: 1 GH Q1D EYE DROP ; 1 GH TID/BID QD EYEDROP
     Route: 047
     Dates: start: 20100311, end: 20100401

REACTIONS (3)
  - PRODUCT SUBSTITUTION ISSUE [None]
  - THERAPEUTIC RESPONSE DECREASED [None]
  - TREATMENT FAILURE [None]
